FAERS Safety Report 8325654-9 (Version None)
Quarter: 2012Q2

REPORT INFORMATION
  Report Type: 
  Country: None (occurrence: None)
  Receive Date: 20120501
  Receipt Date: 20110423
  Transmission Date: 20120825
  Serious: No
  Sender: FDA-Public Use
  Company Number: US-SANOFI-AVENTIS-2011SA026669

PATIENT
  Age: 61 Year
  Sex: Female

DRUGS (2)
  1. SOLOSTAR [Suspect]
  2. APIDRA [Suspect]
     Dosage: PRODUCT START DATE MENTIONED AS QUITE A WHILE NOW
     Route: 058

REACTIONS (2)
  - PRODUCT QUALITY ISSUE [None]
  - SKIN DISCOLOURATION [None]
